FAERS Safety Report 13432589 (Version 2)
Quarter: 2017Q2

REPORT INFORMATION
  Report Type: Spontaneous
  Country: TR (occurrence: TR)
  Receive Date: 20170412
  Receipt Date: 20170601
  Transmission Date: 20170830
  Serious: Yes (Death)
  Sender: FDA-Public Use
  Company Number: TR-ASTRAZENECA-2017SE37974

PATIENT
  Age: 48 Year
  Sex: Female

DRUGS (2)
  1. DAPTOMYCIN. [Suspect]
     Active Substance: DAPTOMYCIN
     Indication: MUCORMYCOSIS
     Route: 042
  2. MEROPENEM. [Suspect]
     Active Substance: MEROPENEM
     Indication: MUCORMYCOSIS
     Route: 042

REACTIONS (3)
  - Encephalopathy [Fatal]
  - Electrolyte depletion [Fatal]
  - Pneumonia [Fatal]
